FAERS Safety Report 4433457-0 (Version None)
Quarter: 2004Q3

REPORT INFORMATION
  Report Type: 
  Country: None (occurrence: None)
  Receive Date: 20040824
  Receipt Date: 20040809
  Transmission Date: 20050211
  Serious: Yes (Disabling)
  Sender: FDA-Public Use
  Company Number: S04-DEN-03815-01

PATIENT
  Age: 45 Year
  Sex: Female

DRUGS (4)
  1. CIPRALEX (ESCITALOPRAM) [Suspect]
  2. ZYRTEC [Suspect]
     Dates: start: 20040601, end: 20040625
  3. ZYRTEC [Suspect]
     Dates: start: 20040723, end: 20040726
  4. SALURES-K [Concomitant]

REACTIONS (7)
  - DERMOGRAPHISM [None]
  - DIZZINESS [None]
  - MIOSIS [None]
  - NAUSEA [None]
  - PRURITUS [None]
  - RASH [None]
  - URTICARIA [None]
